FAERS Safety Report 7214865-1 (Version None)
Quarter: 2011Q1

REPORT INFORMATION
  Report Type: 
  Country: None (occurrence: None)
  Receive Date: 20110107
  Receipt Date: 20100412
  Transmission Date: 20110831
  Serious: No
  Sender: FDA-Public Use
  Company Number: A0854615A

PATIENT
  Age: 77 Year
  Sex: Female

DRUGS (8)
  1. ASPIRIN [Concomitant]
  2. ONE A DAY VITAMIN [Concomitant]
  3. FLAX SEED OIL [Concomitant]
  4. EXFORGE [Concomitant]
  5. LEVOXYL [Concomitant]
  6. B VITAMIN [Concomitant]
  7. LOVAZA [Suspect]
     Indication: BLOOD CHOLESTEROL INCREASED
     Dosage: 2G PER DAY
     Route: 048
     Dates: start: 20070101, end: 20100301
  8. VITAMIN D [Concomitant]

REACTIONS (5)
  - ABASIA [None]
  - DYSPNOEA EXERTIONAL [None]
  - MYALGIA [None]
  - BURNING SENSATION [None]
  - MUSCLE SPASMS [None]
